FAERS Safety Report 17347423 (Version 1)
Quarter: 2020Q1

REPORT INFORMATION
  Report Type: Report from Study
  Country: US (occurrence: US)
  Receive Date: 20200129
  Receipt Date: 20200129
  Transmission Date: 20200409
  Serious: No
  Sender: FDA-Public Use
  Company Number: US-EXELIXIS-CABO-19022382

PATIENT
  Age: 76 Year
  Sex: Male

DRUGS (17)
  1. SPIRIVA [Concomitant]
     Active Substance: TIOTROPIUM BROMIDE MONOHYDRATE
  2. PREDNISONE. [Concomitant]
     Active Substance: PREDNISONE
  3. ALLEGRA [Concomitant]
     Active Substance: FEXOFENADINE HYDROCHLORIDE
  4. CABOMETYX [Suspect]
     Active Substance: CABOZANTINIB S-MALATE
     Dosage: UNK UNK, QD
     Route: 048
  5. PRILOSEC [Concomitant]
     Active Substance: OMEPRAZOLE MAGNESIUM
  6. MUCINEX [Concomitant]
     Active Substance: GUAIFENESIN
  7. ATORVASTATIN [Concomitant]
     Active Substance: ATORVASTATIN
  8. VENTOLIN [Concomitant]
     Active Substance: ALBUTEROL SULFATE
  9. ASMANEX [Concomitant]
     Active Substance: MOMETASONE FUROATE
  10. AZELASTINE. [Concomitant]
     Active Substance: AZELASTINE HYDROCHLORIDE
  11. CABOMETYX [Suspect]
     Active Substance: CABOZANTINIB S-MALATE
     Indication: RENAL CANCER
     Dosage: 20 MG, UNK (FOR THREE WEEKS ON THEN ONE WEEK OFF)
     Route: 048
  12. CLOBETASOL [Concomitant]
     Active Substance: CLOBETASOL
  13. BENADRYL [Concomitant]
     Active Substance: DIPHENHYDRAMINE HYDROCHLORIDE
  14. SINGULAIR [Concomitant]
     Active Substance: MONTELUKAST SODIUM
  15. SYMBICORT [Concomitant]
     Active Substance: BUDESONIDE\FORMOTEROL FUMARATE DIHYDRATE
  16. NORVASC [Concomitant]
     Active Substance: AMLODIPINE BESYLATE
  17. LASIX [Concomitant]
     Active Substance: FUROSEMIDE

REACTIONS (1)
  - Road traffic accident [Unknown]

NARRATIVE: CASE EVENT DATE: 20190629
